FAERS Safety Report 4424998-0 (Version None)
Quarter: 2004Q3

REPORT INFORMATION
  Report Type: 
  Country: None (occurrence: None)
  Receive Date: 20040811
  Receipt Date: 20040811
  Transmission Date: 20050211
  Serious: Yes (Death, Life-Threatening, Hospitalization)
  Sender: FDA-Public Use
  Company Number: None

PATIENT
  Sex: Female
  Weight: 64.4108 kg

DRUGS (8)
  1. FLUOROURACIL [Suspect]
     Indication: RECTAL CANCER
     Dosage: 225 MG/M2 DAILY X 7 IV
     Route: 042
     Dates: start: 20021118, end: 20021227
  2. PAXIL [Concomitant]
  3. COMBIVENT [Concomitant]
  4. ATROVENT [Concomitant]
  5. THEO-24 [Concomitant]
  6. LOTENSIN [Concomitant]
  7. ALBUTEROL [Concomitant]
  8. CLARITIN [Concomitant]

REACTIONS (5)
  - CHRONIC OBSTRUCTIVE AIRWAYS DISEASE EXACERBATED [None]
  - RESPIRATORY DISORDER [None]
  - RESPIRATORY FAILURE [None]
  - RIB FRACTURE [None]
  - SPINAL COMPRESSION FRACTURE [None]
